FAERS Safety Report 25945990 (Version 1)
Quarter: 2025Q4

REPORT INFORMATION
  Report Type: Report from Study
  Country: US (occurrence: US)
  Receive Date: 20251021
  Receipt Date: 20251021
  Transmission Date: 20260117
  Serious: Yes (Hospitalization, Other)
  Sender: ABBVIE
  Company Number: US-ABBVIE-6505655

PATIENT
  Age: 66 Year
  Sex: Male
  Weight: 83.914 kg

DRUGS (1)
  1. VYALEV [Suspect]
     Active Substance: FOSCARBIDOPA\FOSLEVODOPA
     Indication: Parkinson^s disease
     Dosage: FREQUENCY: 24 HOUR INFUSION
     Route: 058
     Dates: start: 20250701

REACTIONS (9)
  - Pneumonia [Recovered/Resolved]
  - Infusion site infection [Recovered/Resolved]
  - Catheter site infection [Recovered/Resolved]
  - Infusion site infection [Recovered/Resolved]
  - Catheter site discharge [Unknown]
  - Infusion site mass [Recovered/Resolved]
  - Dyspnoea [Recovered/Resolved]
  - Dyspnoea [Recovered/Resolved]
  - Infusion site urticaria [Recovered/Resolved]

NARRATIVE: CASE EVENT DATE: 20250101
